FAERS Safety Report 8942881 (Version 1)
Quarter: 2012Q4

REPORT INFORMATION
  Report Type: 
  Country: US (occurrence: US)
  Receive Date: 20121204
  Receipt Date: 20121204
  Transmission Date: 20130627
  Serious: Yes (Hospitalization)
  Sender: FDA-Public Use
  Company Number: US-BAYER-2012-124861

PATIENT
  Age: 30 Year
  Sex: Female

DRUGS (19)
  1. YAZ [Suspect]
  2. OCELLA [Suspect]
     Indication: POLYCYSTIC OVARIAN SYNDROME
  3. GIANVI [Suspect]
  4. CITALOPRAM [Concomitant]
     Dosage: UNK
     Dates: start: 20110716
  5. ACETAMINOPHEN W/OXYCODONE [Concomitant]
  6. PANTOPRAZOLE [Concomitant]
     Dosage: UNK
     Dates: start: 20110716
  7. EFFEXOR [Concomitant]
     Dosage: UNK
     Dates: start: 20110927
  8. LORAZEPAM [Concomitant]
     Dosage: UNK
     Dates: start: 20110927
  9. CIPROFLOXACIN [Concomitant]
  10. CEFUROXIME AXETIL [Concomitant]
  11. CHERATUSSIN AC [Concomitant]
  12. MUCINEX [Concomitant]
  13. CYCLOBENZAPRINE [Concomitant]
  14. IBUPROFEN [Concomitant]
  15. CITALOPRAM HYDROBROMIDE [Concomitant]
  16. VENLAFAXINE HYDROCHLORIDE [Concomitant]
  17. OMEPRAZOLE [Concomitant]
  18. VICODIN [Concomitant]
  19. ATIVAN [Concomitant]

REACTIONS (2)
  - Pulmonary embolism [None]
  - Off label use [None]
